FAERS Safety Report 18905515 (Version 3)
Quarter: 2021Q2

REPORT INFORMATION
  Report Type: Spontaneous
  Country: DE (occurrence: DE)
  Receive Date: 20210217
  Receipt Date: 20210425
  Transmission Date: 20210717
  Serious: Yes (Other)
  Sender: FDA-Public Use
  Company Number: DE-JNJFOC-20210218032

PATIENT
  Age: 5 Decade
  Sex: Female

DRUGS (1)
  1. STELARA [Suspect]
     Active Substance: USTEKINUMAB
     Indication: CROHN^S DISEASE
     Route: 058
     Dates: start: 201911

REACTIONS (3)
  - Hypersensitivity [Recovered/Resolved]
  - Therapeutic product effect decreased [Unknown]
  - Cholangitis sclerosing [Unknown]
